FAERS Safety Report 5972680-0 (Version None)
Quarter: 2008Q4

REPORT INFORMATION
  Report Type: 
  Country: None (occurrence: None)
  Receive Date: 20081201
  Receipt Date: 20081119
  Transmission Date: 20090506
  Serious: Yes (Hospitalization, Other)
  Sender: FDA-Public Use
  Company Number: JP-ELI_LILLY_AND_COMPANY-JP200811006129

PATIENT
  Sex: Female
  Weight: 55.4 kg

DRUGS (15)
  1. PEMETREXED [Suspect]
     Indication: PLEURAL MESOTHELIOMA MALIGNANT
     Dosage: 700 MG, UNK
     Route: 042
     Dates: start: 20080117, end: 20080117
  2. CISPLATIN [Suspect]
     Indication: PLEURAL MESOTHELIOMA MALIGNANT
     Dosage: 50 MG, UNK
     Route: 042
     Dates: start: 20080117, end: 20080117
  3. PANVITAN [Concomitant]
     Dosage: 1 G, DAILY (1/D)
     Route: 048
     Dates: start: 20080109, end: 20080421
  4. CYANOCOBALAMIN [Concomitant]
     Dosage: 1 MG, UNK
     Route: 030
     Dates: start: 20080109, end: 20080312
  5. KYTRIL [Concomitant]
     Indication: PROPHYLAXIS
     Dosage: 6 MG, DAILY (1/D)
     Route: 042
     Dates: start: 20080117, end: 20080118
  6. KYTRIL [Concomitant]
     Dosage: 3 MG, DAILY (1/D)
     Route: 042
     Dates: start: 20080119, end: 20080119
  7. DEXART [Concomitant]
     Indication: PROPHYLAXIS
     Dosage: 16 MG, DAILY (1/D)
     Route: 042
     Dates: start: 20080117, end: 20080117
  8. DEXART [Concomitant]
     Dosage: 12 MG, DAILY (1/D)
     Route: 042
     Dates: start: 20080118, end: 20080118
  9. DEXART [Concomitant]
     Dosage: 8 MG, DAILY (1/D)
     Route: 042
     Dates: start: 20080119, end: 20080119
  10. LASIX [Concomitant]
     Indication: PROPHYLAXIS
     Dosage: 30 MG, DAILY (1/D)
     Route: 042
     Dates: start: 20080117, end: 20080117
  11. LASIX [Concomitant]
     Dosage: 20 MG, DAILY (1/D)
     Route: 042
     Dates: start: 20080118, end: 20080119
  12. DEPAS [Concomitant]
     Indication: PROPHYLAXIS
     Dosage: 1.5 MG, DAILY (1/D)
     Route: 048
     Dates: start: 20080117
  13. RHYTHMY [Concomitant]
     Indication: PROPHYLAXIS
     Dosage: 1 MG, DAILY (1/D)
     Route: 048
     Dates: start: 20080117
  14. ALBUMIN (HUMAN) [Concomitant]
     Indication: PROPHYLAXIS
     Dosage: 100 ML, DAILY (1/D)
     Route: 042
     Dates: start: 20080121, end: 20080212
  15. ALESION [Concomitant]
     Indication: RASH
     Dosage: 20 MG, DAILY (1/D)
     Route: 048
     Dates: start: 20080129, end: 20080131

REACTIONS (8)
  - FEBRILE NEUTROPENIA [None]
  - HAEMOGLOBIN DECREASED [None]
  - ILEUS [None]
  - NAUSEA [None]
  - NEUTROPHIL COUNT DECREASED [None]
  - PLATELET COUNT DECREASED [None]
  - VOMITING [None]
  - WHITE BLOOD CELL COUNT DECREASED [None]
